FAERS Safety Report 10067569 (Version 2)
Quarter: 2014Q2

REPORT INFORMATION
  Report Type: Spontaneous
  Country: JP (occurrence: None)
  Receive Date: 20140407
  Receipt Date: 20140501
  Transmission Date: 20141212
  Serious: Yes (Other)
  Sender: FDA-Public Use
  Company Number: JP-015161

PATIENT
  Age: 79 Year
  Sex: Male
  Weight: 46 kg

DRUGS (7)
  1. DEGARELIX (GONAX) (240 MG, 80MG) [Suspect]
     Indication: PROSTATE CANCER
     Route: 058
     Dates: start: 20130321, end: 20130321
  2. URIEF [Concomitant]
  3. FLIVAS [Concomitant]
  4. HARNAL [Concomitant]
  5. RINGEREAZE [Concomitant]
  6. SELBEX [Concomitant]
  7. LOXONIN [Concomitant]

REACTIONS (7)
  - Loss of consciousness [None]
  - Erythema [None]
  - Swelling [None]
  - Induration [None]
  - Pain [None]
  - Hyperhidrosis [None]
  - Syncope [None]
